FAERS Safety Report 23567074 (Version 1)
Quarter: 2024Q1

REPORT INFORMATION
  Report Type: Spontaneous
  Country: US (occurrence: US)
  Receive Date: 20240226
  Receipt Date: 20240226
  Transmission Date: 20240410
  Serious: No
  Sender: FDA-Public Use
  Company Number: US-AMNEAL PHARMACEUTICALS-2024-AMRX-00025

PATIENT
  Sex: Male

DRUGS (2)
  1. RYTARY [Suspect]
     Active Substance: CARBIDOPA\LEVODOPA
     Indication: Product used for unknown indication
     Dosage: 1 CAPSULES, (36.25MG-145MG) 4 /DAY
     Route: 048
  2. RYTARY [Suspect]
     Active Substance: CARBIDOPA\LEVODOPA
     Dosage: 2 CAPSULES, (48.75/195 MG) 5 /DAY
     Route: 048

REACTIONS (6)
  - Weight decreased [Unknown]
  - Tongue movement disturbance [Unknown]
  - Muscle spasms [Unknown]
  - Abdominal discomfort [Unknown]
  - Hypotension [Unknown]
  - Dizziness [Unknown]
